FAERS Safety Report 25575621 (Version 2)
Quarter: 2025Q3

REPORT INFORMATION
  Report Type: Report from Study
  Country: US (occurrence: US)
  Receive Date: 20250718
  Receipt Date: 20250721
  Transmission Date: 20251020
  Serious: Yes (Other)
  Sender: ABBVIE
  Company Number: US-ABBVIE-6374165

PATIENT
  Sex: Male

DRUGS (2)
  1. RINVOQ [Suspect]
     Active Substance: UPADACITINIB
     Indication: Dermatitis atopic
     Route: 048
     Dates: start: 20220420
  2. RINVOQ [Suspect]
     Active Substance: UPADACITINIB
     Indication: Dermatitis atopic
     Route: 048
     Dates: start: 20220514

REACTIONS (6)
  - Cardiac operation [Recovering/Resolving]
  - Blood cholesterol increased [Recovered/Resolved]
  - Transient ischaemic attack [Recovered/Resolved]
  - Amnesia [Recovering/Resolving]
  - Dermatitis atopic [Recovering/Resolving]
  - Frustration tolerance decreased [Unknown]

NARRATIVE: CASE EVENT DATE: 20230101
